FAERS Safety Report 8140163-8 (Version None)
Quarter: 2012Q1

REPORT INFORMATION
  Report Type: 
  Country: None (occurrence: None)
  Receive Date: 20120216
  Receipt Date: 20120206
  Transmission Date: 20120608
  Serious: No
  Sender: FDA-Public Use
  Company Number: US-BIOGENIDEC-2011BI026601

PATIENT
  Sex: Female

DRUGS (2)
  1. WATER PILLS (NOS) [Concomitant]
     Indication: OEDEMA PERIPHERAL
  2. TYSABRI [Suspect]
     Indication: MULTIPLE SCLEROSIS
     Route: 042
     Dates: start: 20110701

REACTIONS (6)
  - ASTHENIA [None]
  - MALAISE [None]
  - FATIGUE [None]
  - DRUG EFFECT DECREASED [None]
  - GAIT DISTURBANCE [None]
  - MULTIPLE SCLEROSIS RELAPSE [None]
